FAERS Safety Report 10263817 (Version 1)
Quarter: 2014Q2

REPORT INFORMATION
  Report Type: Spontaneous
  Country: US (occurrence: US)
  Receive Date: 20140627
  Receipt Date: 20140627
  Transmission Date: 20141212
  Serious: No
  Sender: FDA-Public Use
  Company Number: US-ASTRAZENECA-2014SE44923

PATIENT
  Age: 652 Month
  Sex: Male
  Weight: 81.6 kg

DRUGS (2)
  1. SYMBICORT  PMDI [Suspect]
     Indication: ASTHMA
     Dosage: 160  4.5 2 PUFFS BID
     Route: 055
     Dates: start: 201403
  2. PROAIR [Concomitant]
     Dosage: 90 MCG. 2 TO 4 PUFFS PRN
     Route: 055

REACTIONS (8)
  - Alopecia [Not Recovered/Not Resolved]
  - Pain in extremity [Not Recovered/Not Resolved]
  - Eye irritation [Not Recovered/Not Resolved]
  - Ocular hyperaemia [Not Recovered/Not Resolved]
  - Eye pruritus [Not Recovered/Not Resolved]
  - Nasal congestion [Not Recovered/Not Resolved]
  - Madarosis [Not Recovered/Not Resolved]
  - Blood glucose increased [Not Recovered/Not Resolved]
